FAERS Safety Report 9637721 (Version 1)
Quarter: 2013Q4

REPORT INFORMATION
  Report Type: Spontaneous
  Country: FR (occurrence: None)
  Receive Date: 20131018
  Receipt Date: 20131018
  Transmission Date: 20140711
  Serious: Yes (Life-Threatening)
  Sender: FDA-Public Use
  Company Number: 1899722

PATIENT
  Age: 62 Year
  Sex: Male
  Weight: 87 kg

DRUGS (4)
  1. CARBOPLATIN [Suspect]
     Indication: MANTLE CELL LYMPHOMA STAGE IV
     Dosage: 700 MG MILLIGRAM (S), 1 CYCLINICAL, INTRAVENOUS
     Dates: start: 20120102, end: 20120102
  2. RITUXIMAB [Suspect]
     Indication: MANTLE CELL LYMPHOMA STAGE IV
     Dosage: 900 MG MILLIGRAM(S), 1 CYCLICAL, INTRAVENOUS
     Dates: start: 20120102, end: 20120102
  3. DEXAMETHASONE SODIUM PHOSPHATE [Suspect]
     Indication: MANTLE CELL LYMPHOMA STAGE IV
     Dosage: 40 MG MILLIGRAM (S) UNKNOWN, INTRAVENOUS
     Dates: start: 20120104, end: 20120104
  4. ARACYTINE [Suspect]
     Indication: MANTLE CELL LYMPHOMA STAGE IV
     Dosage: 4000 MG/M2 MILLIGRAM (S) SQ. METER
     Dates: start: 20120103, end: 20120104

REACTIONS (5)
  - Cardiac arrest [None]
  - Ventricular fibrillation [None]
  - Atrial tachycardia [None]
  - Malaise [None]
  - Cardio-respiratory arrest [None]
